FAERS Safety Report 15058728 (Version 2)
Quarter: 2018Q3

REPORT INFORMATION
  Report Type: Report from Study
  Country: None (occurrence: US)
  Receive Date: 20180625
  Receipt Date: 20180917
  Transmission Date: 20181010
  Serious: Yes (Other)
  Sender: FDA-Public Use
  Company Number: US-ABBVIE-18K-163-2394604-00

PATIENT
  Sex: Female
  Weight: 72.64 kg

DRUGS (1)
  1. HUMIRA [Suspect]
     Active Substance: ADALIMUMAB
     Indication: COLITIS ULCERATIVE
     Route: 058

REACTIONS (6)
  - Paraesthesia [Unknown]
  - Systemic lupus erythematosus [Unknown]
  - Muscle contracture [Unknown]
  - Sialoadenitis [Recovered/Resolved]
  - Drug specific antibody present [Unknown]
  - Hypoaesthesia [Not Recovered/Not Resolved]
